FAERS Safety Report 15181759 (Version 1)
Quarter: 2018Q3

REPORT INFORMATION
  Report Type: Report from Study
  Country: None (occurrence: US)
  Receive Date: 20180723
  Receipt Date: 20180723
  Transmission Date: 20181010
  Serious: Yes (Other)
  Sender: FDA-Public Use
  Company Number: US-BAUSCH-BL-2018-019827

PATIENT
  Sex: Female

DRUGS (3)
  1. SYPRINE [Suspect]
     Active Substance: TRIENTINE HYDROCHLORIDE
     Dosage: RE?STARTED AGAIN POST DISCONTINUED THE GENERIC TRIENTINE
     Route: 065
  2. TRIENTINE [Suspect]
     Active Substance: TRIENTINE
     Indication: HEPATO-LENTICULAR DEGENERATION
     Route: 065
  3. SYPRINE [Suspect]
     Active Substance: TRIENTINE HYDROCHLORIDE
     Indication: HEPATO-LENTICULAR DEGENERATION
     Dosage: 700?1000 MG DAILY
     Route: 065

REACTIONS (6)
  - Tremor [Recovering/Resolving]
  - Tongue neoplasm malignant stage unspecified [Unknown]
  - Treatment noncompliance [Unknown]
  - Product substitution issue [Recovered/Resolved]
  - Memory impairment [Unknown]
  - Ill-defined disorder [Unknown]

NARRATIVE: CASE EVENT DATE: 2016
